FAERS Safety Report 9855103 (Version 1)
Quarter: 2013Q4

REPORT INFORMATION
  Report Type: Spontaneous
  Country: US (occurrence: None)
  Receive Date: 20131226
  Receipt Date: 20131226
  Transmission Date: 20140711
  Serious: Yes (Other)
  Sender: FDA-Public Use
  Company Number: PHEH2012US007663

PATIENT
  Age: 12 Year
  Sex: Female

DRUGS (5)
  1. AFINITOR (RAD) UNKNOWN [Suspect]
     Indication: TUBEROUS SCLEROSIS
     Route: 048
     Dates: start: 20120408
  2. DEPO-PROVERA [Suspect]
  3. LAMICTAL (LAMOTRIGINE) [Concomitant]
  4. NEURONTIN GABAPENTIN) [Concomitant]
  5. DIASTAT PRN DIAZEPAM) [Concomitant]

REACTIONS (3)
  - Convulsion [None]
  - Mood swings [None]
  - White blood cell count decreased [None]
